FAERS Safety Report 6617079-9 (Version None)
Quarter: 2010Q1

REPORT INFORMATION
  Report Type: 
  Country: None (occurrence: None)
  Receive Date: 20100307
  Receipt Date: 20100225
  Transmission Date: 20100710
  Serious: Yes (Hospitalization, Disabling, Other)
  Sender: FDA-Public Use
  Company Number: JP-BRISTOL-MYERS SQUIBB COMPANY-14807259

PATIENT
  Age: 77 Year
  Sex: Female
  Weight: 50 kg

DRUGS (6)
  1. ERBITUX [Suspect]
     Indication: COLON CANCER
     Dosage: 4TH AND RECENT INF ON 21AUG09;07AUG09-21AUG09(350MG)14D 24-31JUL09 (7D)
     Route: 042
     Dates: start: 20090724, end: 20090821
  2. IRINOTECAN HCL [Suspect]
     Indication: COLON CANCER
     Route: 042
     Dates: start: 20090724, end: 20090724
  3. VENA [Concomitant]
     Indication: PREMEDICATION
     Dosage: TABS
     Route: 048
     Dates: start: 20090724, end: 20090821
  4. DECADRON [Concomitant]
     Indication: PREMEDICATION
     Route: 042
     Dates: start: 20090724, end: 20090821
  5. GASTER [Concomitant]
     Indication: PREMEDICATION
     Route: 042
     Dates: start: 20090724, end: 20090821
  6. KYTRIL [Concomitant]
     Indication: ANTIEMETIC SUPPORTIVE CARE
     Route: 065
     Dates: start: 20090724

REACTIONS (4)
  - BLEPHARITIS [None]
  - DIARRHOEA [None]
  - PARONYCHIA [None]
  - PINGUECULITIS [None]
